FAERS Safety Report 18440779 (Version 2)
Quarter: 2020Q4

REPORT INFORMATION
  Report Type: Spontaneous
  Country: DE (occurrence: JP)
  Receive Date: 20201029
  Receipt Date: 20201103
  Transmission Date: 20210114
  Serious: Yes (Death, Other)
  Sender: FDA-Public Use
  Company Number: JP-ELI_LILLY_AND_COMPANY-JP202010012230

PATIENT
  Age: 74 Year
  Sex: Male

DRUGS (1)
  1. ERBITUX [Suspect]
     Active Substance: CETUXIMAB
     Indication: RECTAL CANCER METASTATIC
     Dosage: UNK UNK, UNKNOWN
     Route: 041

REACTIONS (2)
  - Death [Fatal]
  - Malignant neoplasm progression [Unknown]
